FAERS Safety Report 20381877 (Version 3)
Quarter: 2022Q1

REPORT INFORMATION
  Report Type: Spontaneous
  Country: US (occurrence: US)
  Receive Date: 20220127
  Receipt Date: 20220321
  Transmission Date: 20220423
  Serious: Yes (Death)
  Sender: FDA-Public Use
  Company Number: US-ABBVIE-22K-163-4251347-00

PATIENT
  Age: 79 Year
  Sex: Female
  Weight: 57.88 kg

DRUGS (2)
  1. PAXLOVID [Suspect]
     Active Substance: NIRMATRELVIR\RITONAVIR
     Indication: COVID-19
     Dosage: 1 RITONAVIR 100 MG
     Route: 065
     Dates: start: 20220113, end: 20220115
  2. PAXLOVID [Suspect]
     Active Substance: NIRMATRELVIR\RITONAVIR
     Indication: COVID-19
     Dosage: 1 NIRMATRELVIR 150MG
     Route: 065
     Dates: start: 20220113, end: 20220115

REACTIONS (4)
  - Death [Fatal]
  - Medication error [Unknown]
  - Product dispensing error [Unknown]
  - Product use issue [Unknown]

NARRATIVE: CASE EVENT DATE: 20220113
